FAERS Safety Report 7796652-9 (Version None)
Quarter: 2011Q4

REPORT INFORMATION
  Report Type: 
  Country: None (occurrence: None)
  Receive Date: 20111005
  Receipt Date: 20110922
  Transmission Date: 20120403
  Serious: Yes (Hospitalization)
  Sender: FDA-Public Use
  Company Number: US-BAYER-2011-009675

PATIENT
  Age: 16 Year
  Sex: Female

DRUGS (5)
  1. NORCO [Concomitant]
     Route: 048
  2. SINGULAIR [Concomitant]
     Dosage: 10 MG, ONCE
     Dates: start: 20060101, end: 20090101
  3. YAZ [Suspect]
     Indication: CONTRACEPTION
     Dosage: UNK
     Dates: start: 20080301, end: 20080401
  4. VALIUM [Concomitant]
     Indication: MUSCLE SPASMS
  5. YAZ [Suspect]
     Indication: ACNE
     Dosage: UNK
     Dates: start: 20081101, end: 20090103

REACTIONS (8)
  - FEAR [None]
  - PAIN IN EXTREMITY [None]
  - PAIN [None]
  - DEEP VEIN THROMBOSIS [None]
  - INJURY [None]
  - EMOTIONAL DISTRESS [None]
  - ANXIETY [None]
  - GROIN PAIN [None]
